FAERS Safety Report 6156722-8 (Version None)
Quarter: 2009Q2

REPORT INFORMATION
  Report Type: 
  Country: None (occurrence: None)
  Receive Date: 20090413
  Receipt Date: 20090413
  Transmission Date: 20091009
  Serious: Yes (Disabling)
  Sender: FDA-Public Use
  Company Number: None

PATIENT
  Age: 51 Year
  Sex: Female
  Weight: 62.5964 kg

DRUGS (1)
  1. AVELOX [Suspect]
     Indication: LUNG INFECTION
     Dosage: ONCE A DAY
     Dates: start: 20090318, end: 20090403

REACTIONS (5)
  - GAIT DISTURBANCE [None]
  - IMPAIRED WORK ABILITY [None]
  - JOINT LOCK [None]
  - MUSCULAR WEAKNESS [None]
  - PAIN [None]
